FAERS Safety Report 8357545-1 (Version None)
Quarter: 2012Q2

REPORT INFORMATION
  Report Type: 
  Country: None (occurrence: None)
  Receive Date: 20120514
  Receipt Date: 20120507
  Transmission Date: 20120825
  Serious: Yes (Death)
  Sender: FDA-Public Use
  Company Number: TR-ACTELION-A-CH2012-65261

PATIENT
  Sex: Male
  Weight: 56 kg

DRUGS (4)
  1. FUROSEMIDE [Concomitant]
  2. SILDENAFIL [Concomitant]
     Dosage: UNK
     Dates: start: 20100101
  3. DIGOXIN [Concomitant]
  4. TRACLEER [Suspect]
     Indication: PULMONARY ARTERIAL HYPERTENSION
     Dosage: 125 MG, BID
     Route: 048
     Dates: start: 20080201

REACTIONS (3)
  - EISENMENGER'S SYNDROME [None]
  - DISEASE PROGRESSION [None]
  - CARDIAC ARREST [None]
